FAERS Safety Report 22244869 (Version 2)
Quarter: 2023Q2

REPORT INFORMATION
  Report Type: Spontaneous
  Country: US (occurrence: US)
  Receive Date: 20230424
  Receipt Date: 20230526
  Transmission Date: 20230722
  Serious: Yes (Other)
  Sender: FDA-Public Use
  Company Number: US-PFIZER INC-202300165646

PATIENT
  Age: 58 Year
  Sex: Male

DRUGS (1)
  1. BOSULIF [Suspect]
     Active Substance: BOSUTINIB MONOHYDRATE
     Indication: Chronic myeloid leukaemia
     Dosage: 3 X 100 MG TABLETS DAILY
     Route: 048
     Dates: start: 20221223, end: 2023

REACTIONS (2)
  - Hepatotoxicity [Unknown]
  - Lipids abnormal [Recovering/Resolving]

NARRATIVE: CASE EVENT DATE: 20230401
